FAERS Safety Report 19467795 (Version 1)
Quarter: 2021Q2

REPORT INFORMATION
  Report Type: Spontaneous
  Country: US (occurrence: US)
  Receive Date: 20210628
  Receipt Date: 20210628
  Transmission Date: 20210717
  Serious: No
  Sender: FDA-Public Use
  Company Number: US-MYLANLABS-2021M1033983

PATIENT
  Age: 55 Year
  Sex: Male
  Weight: 176 kg

DRUGS (3)
  1. NOVOLOG [Concomitant]
     Active Substance: INSULIN ASPART
     Dosage: INJECT 10 UNITS BEFORE MEALS
  2. SEMGLEE [Suspect]
     Active Substance: INSULIN GLARGINE
     Indication: TYPE 2 DIABETES MELLITUS
     Dosage: 80 INTERNATIONAL UNIT, QD (TAKE 80 UNITS BEFORE BED)
     Route: 058
  3. METFORMIN [Concomitant]
     Active Substance: METFORMIN HYDROCHLORIDE
     Dosage: 1000 MILLIGRAM, BID(TWO 500MG TABS IN AM AND TWO 500MG BEFORE BED_

REACTIONS (5)
  - Weight increased [Not Recovered/Not Resolved]
  - Product substitution issue [Not Recovered/Not Resolved]
  - Inappropriate schedule of product administration [Not Recovered/Not Resolved]
  - Device issue [Not Recovered/Not Resolved]
  - Wrong technique in product usage process [Not Recovered/Not Resolved]

NARRATIVE: CASE EVENT DATE: 20210604
